FAERS Safety Report 6252663-6 (Version None)
Quarter: 2009Q3

REPORT INFORMATION
  Report Type: 
  Country: None (occurrence: None)
  Receive Date: 20090701
  Receipt Date: 20090619
  Transmission Date: 20100115
  Serious: Yes (Hospitalization)
  Sender: FDA-Public Use
  Company Number: PHHO2009ES08006

PATIENT
  Sex: Male

DRUGS (14)
  1. CYCLOSPORINE [Suspect]
     Indication: RENAL TRANSPLANT
     Dosage: 300 MG, BID
     Route: 048
     Dates: start: 20031212
  2. MYCOPHENOLATE MOFETIL [Suspect]
     Indication: RENAL TRANSPLANT
     Dosage: 1 G, BID
     Route: 048
     Dates: start: 20031212, end: 20041008
  3. MYCOPHENOLATE MOFETIL [Suspect]
     Dosage: 1 G, BID
     Route: 048
     Dates: start: 20041015
  4. PREDNISOLONE [Suspect]
     Indication: RENAL TRANSPLANT
     Dosage: 250 MG, ONCE/SINGLE
     Route: 042
     Dates: start: 20031212, end: 20031212
  5. PREDNISOLONE [Suspect]
     Dosage: 20 MG, QD
     Route: 048
     Dates: start: 20031213
  6. LEVOTHYROXINE SODIUM [Concomitant]
  7. DOXAZOSIN MESYLATE [Concomitant]
  8. ATENOLOL [Concomitant]
  9. BROMAZEPAM [Concomitant]
  10. FERROUS SULFATE TAB [Concomitant]
  11. AMLODIPINE [Concomitant]
  12. LOSARTAN POTASSIUM [Concomitant]
  13. FUROSEMIDE INTENSOL [Concomitant]
  14. COTRIM [Concomitant]

REACTIONS (14)
  - ABDOMINAL PAIN UPPER [None]
  - CHEST PAIN [None]
  - DYSPEPSIA [None]
  - GASTRITIS ATROPHIC [None]
  - GASTROOESOPHAGEAL REFLUX DISEASE [None]
  - HYDRONEPHROSIS [None]
  - NEPHROSTOMY [None]
  - OBSTRUCTIVE UROPATHY [None]
  - PNEUMONIA [None]
  - PYELONEPHRITIS [None]
  - PYREXIA [None]
  - RENAL IMPAIRMENT [None]
  - URETERIC STENOSIS [None]
  - URINARY TRACT INFECTION [None]
